FAERS Safety Report 8541660-3 (Version None)
Quarter: 2012Q3

REPORT INFORMATION
  Report Type: 
  Country: None (occurrence: None)
  Receive Date: 20120726
  Receipt Date: 20120717
  Transmission Date: 20120928
  Serious: Yes (Hospitalization, Other)
  Sender: FDA-Public Use
  Company Number: GB-GLAXOSMITHKLINE-B0807402A

PATIENT
  Sex: Female
  Weight: 64 kg

DRUGS (13)
  1. ACRIVASTINE [Concomitant]
     Dosage: 8MG THREE TIMES PER DAY
     Dates: start: 19950728
  2. BENDROFLUMETHIAZIDE [Concomitant]
     Dosage: 2.5MG PER DAY
     Dates: start: 20050420
  3. METOCLOPRAMIDE [Suspect]
     Indication: PRODUCT USED FOR UNKNOWN INDICATION
     Dosage: 10MG AS REQUIRED
     Route: 048
     Dates: start: 20080806, end: 20110901
  4. TETRABENAZINE [Suspect]
     Indication: PRODUCT USED FOR UNKNOWN INDICATION
     Dosage: 4.5MG PER DAY
     Route: 048
     Dates: start: 20111128, end: 20120320
  5. LORAZEPAM [Suspect]
     Indication: PRODUCT USED FOR UNKNOWN INDICATION
     Dosage: 1MG THREE TIMES PER DAY
     Route: 048
     Dates: start: 20120329, end: 20120523
  6. RAMIPRIL [Concomitant]
     Dosage: 2.5MG PER DAY
     Dates: start: 20080201
  7. PROPRANOLOL [Suspect]
     Indication: PRODUCT USED FOR UNKNOWN INDICATION
     Dosage: 10MG SIX TIMES PER DAY
     Route: 048
     Dates: start: 20120501
  8. LANSOPRAZOLE [Concomitant]
     Dosage: 30MG PER DAY
     Dates: start: 20080627
  9. BECONASE [Concomitant]
     Dates: start: 20071120
  10. FENOFIBRATE [Concomitant]
     Dosage: 160MG PER DAY
     Dates: start: 20030520
  11. PAROXETINE HYDROCHLORIDE [Suspect]
     Indication: DEPRESSION
     Route: 048
     Dates: start: 19970707, end: 20111206
  12. MIRTAZAPINE [Suspect]
     Indication: PRODUCT USED FOR UNKNOWN INDICATION
     Dosage: 30MG PER DAY
     Route: 065
     Dates: start: 20120501
  13. ATORVASTATIN [Concomitant]
     Dosage: 40MG AT NIGHT
     Dates: start: 20031114

REACTIONS (5)
  - AKATHISIA [None]
  - FALL [None]
  - HALLUCINATION [None]
  - MUSCLE CONTRACTIONS INVOLUNTARY [None]
  - EATING DISORDER [None]
